FAERS Safety Report 24311969 (Version 1)
Quarter: 2024Q3

REPORT INFORMATION
  Report Type: Spontaneous
  Country: CN (occurrence: CN)
  Receive Date: 20240912
  Receipt Date: 20240912
  Transmission Date: 20241016
  Serious: Yes (Other)
  Sender: BAYER
  Company Number: CN-BAYER-2024A130369

PATIENT
  Age: 49 Year
  Sex: Female
  Weight: 60 kg

DRUGS (3)
  1. MIRENA [Suspect]
     Active Substance: LEVONORGESTREL
     Indication: Endometrial hyperplasia
     Dosage: 20?G/DAY
     Route: 015
     Dates: start: 20240821
  2. KUN NING KOU FU YE [Concomitant]
     Indication: Abnormal uterine bleeding
     Dosage: 2 ML, TID
     Route: 048
     Dates: start: 20240821, end: 20240823
  3. CEFADROXIL [Concomitant]
     Active Substance: CEFADROXIL
     Indication: Prophylaxis
     Dosage: 0.5 G, BID
     Route: 048
     Dates: start: 20240821, end: 20240822

REACTIONS (3)
  - Generalised oedema [Unknown]
  - Off label use of device [None]
  - Device use issue [None]

NARRATIVE: CASE EVENT DATE: 20240821
